FAERS Safety Report 6705167-8 (Version None)
Quarter: 2010Q2

REPORT INFORMATION
  Report Type: 
  Country: None (occurrence: None)
  Receive Date: 20100430
  Receipt Date: 20100303
  Transmission Date: 20101027
  Serious: No
  Sender: FDA-Public Use
  Company Number: US-ASTRAZENECA-2010SE09456

PATIENT
  Age: 60 Year
  Sex: Male
  Weight: 74.8 kg

DRUGS (8)
  1. NEXIUM [Suspect]
     Indication: GASTROOESOPHAGEAL REFLUX DISEASE
     Route: 048
  2. RENEGEL [Concomitant]
  3. METOPROLOL [Concomitant]
  4. PLAVIX [Concomitant]
  5. AMLODIPINE [Concomitant]
  6. DIOVAN [Concomitant]
  7. ZOCOR [Concomitant]
  8. NEPHRO-VITE [Concomitant]

REACTIONS (2)
  - DRUG DOSE OMISSION [None]
  - GASTROOESOPHAGEAL REFLUX DISEASE [None]
